FAERS Safety Report 4591456-2 (Version None)
Quarter: 2005Q1

REPORT INFORMATION
  Report Type: 
  Country: None (occurrence: None)
  Receive Date: 20050225
  Receipt Date: 20050216
  Transmission Date: 20050727
  Serious: Yes (Hospitalization)
  Sender: FDA-Public Use
  Company Number: JP-ABBOTT-05P-087-0291306-00

PATIENT
  Age: 70 Year
  Sex: Female

DRUGS (6)
  1. CLARITH [Suspect]
     Indication: SINUSITIS
     Route: 048
     Dates: start: 20040201, end: 20040811
  2. FUDOSTEINE [Suspect]
     Indication: SINUSITIS
     Route: 048
  3. APRICOT KERNEL WATER [Suspect]
     Indication: SINUSITIS
     Route: 048
  4. CHERRY BARK EXTRACT [Suspect]
     Indication: SINUSITIS
     Route: 048
  5. SIMPLE SYRUP [Suspect]
     Indication: SINUSITIS
     Route: 048
  6. NICARDIPINE HYDROCHLORIDE [Concomitant]
     Indication: HYPERTENSION
     Route: 048

REACTIONS (1)
  - HAEMOLYTIC ANAEMIA [None]
